FAERS Safety Report 6746798-9 (Version None)
Quarter: 2010Q2

REPORT INFORMATION
  Report Type: 
  Country: None (occurrence: None)
  Receive Date: 20100528
  Receipt Date: 20091116
  Transmission Date: 20101027
  Serious: No
  Sender: FDA-Public Use
  Company Number: A0817228A

PATIENT
  Age: 50 Year
  Sex: Female

DRUGS (3)
  1. VENTOLIN [Suspect]
     Indication: ASTHMA
     Route: 055
     Dates: start: 19990101
  2. LEVOTHYROXINE SODIUM [Concomitant]
  3. LISINOPRIL [Concomitant]

REACTIONS (3)
  - COUGH [None]
  - DRUG INEFFECTIVE [None]
  - RESPIRATORY TRACT IRRITATION [None]
